FAERS Safety Report 6432647-5 (Version None)
Quarter: 2009Q4

REPORT INFORMATION
  Report Type: 
  Country: None (occurrence: None)
  Receive Date: 20091109
  Receipt Date: 20091028
  Transmission Date: 20100525
  Serious: Yes (Hospitalization, Other)
  Sender: FDA-Public Use
  Company Number: JP-ELI_LILLY_AND_COMPANY-JP200911000732

PATIENT
  Age: 31 Year
  Sex: Male

DRUGS (8)
  1. ZYPREXA [Suspect]
     Indication: SCHIZOPHRENIA
     Dosage: UNK, UNKNOWN
     Route: 048
  2. ZYPREXA [Suspect]
     Dosage: 5 MG, DAILY (1/D)
     Route: 048
  3. ZYPREXA [Suspect]
     Dosage: 15 MG, DAILY (1/D)
     Route: 048
  4. RISPERIDONE [Concomitant]
     Indication: SCHIZOPHRENIA
     Dosage: 2 MG, DAILY (1/D)
     Route: 048
  5. ARIPIPRAZOLE [Concomitant]
     Dosage: 12-18 MG, DAILY (1/D)
     Route: 048
  6. HALOPERIDOL [Concomitant]
     Indication: SCHIZOPHRENIA, CATATONIC TYPE
     Dosage: 10 MG, DAILY (1/D)
     Route: 042
  7. DIAZEPAM [Concomitant]
     Indication: SCHIZOPHRENIA, CATATONIC TYPE
     Dosage: LOW DOSE
     Route: 042
  8. FLUNITRAZEPAM [Concomitant]
     Indication: SCHIZOPHRENIA, CATATONIC TYPE
     Dosage: LOW DOSE
     Route: 042

REACTIONS (6)
  - AKATHISIA [None]
  - INCOHERENT [None]
  - NEGATIVISM [None]
  - NEUROLEPTIC MALIGNANT SYNDROME [None]
  - OBESITY [None]
  - PNEUMONIA ASPIRATION [None]
